FAERS Safety Report 18360430 (Version 1)
Quarter: 2020Q4

REPORT INFORMATION
  Report Type: Other
  Country: FR (occurrence: FR)
  Receive Date: 20201008
  Receipt Date: 20201008
  Transmission Date: 20210114
  Serious: Yes (Other)
  Sender: FDA-Public Use
  Company Number: FR-GE HEALTHCARE LIFE SCIENCES-2020CSU005127

PATIENT

DRUGS (2)
  1. OMNIPAQUE [Suspect]
     Active Substance: IOHEXOL
     Indication: COMPUTERISED TOMOGRAM
     Dosage: 40 ML, SINGLE
     Route: 041
     Dates: start: 20200811, end: 20200811
  2. OMNIPAQUE [Suspect]
     Active Substance: IOHEXOL
     Indication: PRODUCT USED FOR UNKNOWN INDICATION

REACTIONS (2)
  - Oedema [Recovered/Resolved]
  - Extravasation [Recovered/Resolved]

NARRATIVE: CASE EVENT DATE: 20200811
